FAERS Safety Report 8364181-X (Version None)
Quarter: 2012Q1

REPORT INFORMATION
  Report Type: 
  Country: None (occurrence: None)
  Receive Date: 20120323
  Receipt Date: 20111110
  Transmission Date: 20120608
  Serious: Yes (Hospitalization)
  Sender: FDA-Public Use
  Company Number: 163-21880-11111505

PATIENT
  Age: 81 Year
  Sex: Female

DRUGS (8)
  1. REVLIMID [Suspect]
     Indication: MULTIPLE MYELOMA
     Dosage: 15 MG, X 21 CAPS, PO
     Route: 048
     Dates: start: 20110323
  2. SYMBICORT (SYMBICORT TURBUHALER ^DRACO^) [Concomitant]
  3. POTASSIUM CHLORIDE CRYS CR (POTASSIUM CHLORIDE) [Concomitant]
  4. BISOPROLOL-HYDROCHLOROTHIAZIDE (BISELECT) [Concomitant]
  5. DEPLIN (CALCIUM LEVOMEFOLATE) [Concomitant]
  6. ALBUTEROL SULFATE [Concomitant]
  7. LORATADINE [Concomitant]
  8. DEXAMETHASONE [Concomitant]

REACTIONS (1)
  - PNEUMONIA [None]
